FAERS Safety Report 10459812 (Version 1)
Quarter: 2014Q3

REPORT INFORMATION
  Report Type: Spontaneous
  Country: US (occurrence: None)
  Receive Date: 20140915
  Receipt Date: 20140915
  Transmission Date: 20150326
  Serious: Yes (Other)
  Sender: FDA-Public Use
  Company Number: 1937531-2014-00006

PATIENT

DRUGS (1)
  1. CAL STAT PLUS ANTISEPTIC [Suspect]
     Active Substance: ISOPROPYL ALCOHOL

REACTIONS (1)
  - Drug hypersensitivity [None]

NARRATIVE: CASE EVENT DATE: 20140822
